FAERS Safety Report 11362963 (Version 1)
Quarter: 2015Q3

REPORT INFORMATION
  Report Type: Spontaneous
  Country: US (occurrence: US)
  Receive Date: 20150810
  Receipt Date: 20150810
  Transmission Date: 20151125
  Serious: No
  Sender: FDA-Public Use
  Company Number: US-AMEDRA PHARMACEUTICALS LLC-2014AMD00080

PATIENT
  Age: 41 Year
  Sex: Female
  Weight: 63.49 kg

DRUGS (4)
  1. IRON [Concomitant]
     Active Substance: IRON
  2. ALBENZA [Suspect]
     Active Substance: ALBENDAZOLE
     Indication: CESTODE INFECTION
     Dosage: 200 MG, 2X/DAY
     Route: 048
     Dates: start: 20140826
  3. VITAMIN D [Concomitant]
     Active Substance: CHOLECALCIFEROL
  4. FISH OIL [Concomitant]
     Active Substance: FISH OIL

REACTIONS (2)
  - Constipation [Recovered/Resolved]
  - Off label use [Not Recovered/Not Resolved]

NARRATIVE: CASE EVENT DATE: 20140826
